FAERS Safety Report 6867867-9 (Version None)
Quarter: 2010Q3

REPORT INFORMATION
  Report Type: 
  Country: None (occurrence: None)
  Receive Date: 20100722
  Receipt Date: 20080507
  Transmission Date: 20110219
  Serious: No
  Sender: FDA-Public Use
  Company Number: US-PFIZER INC-2008039585

PATIENT
  Sex: Female
  Weight: 59 kg

DRUGS (3)
  1. CHANTIX [Suspect]
     Indication: SMOKING CESSATION THERAPY
     Dates: start: 20080401
  2. ENTOCORT EC [Concomitant]
     Indication: COLITIS
  3. LEXAPRO [Concomitant]
     Indication: AFFECTIVE DISORDER

REACTIONS (2)
  - MALAISE [None]
  - NAUSEA [None]
